FAERS Safety Report 10463572 (Version 1)
Quarter: 2014Q3

REPORT INFORMATION
  Report Type: Spontaneous
  Country: US (occurrence: None)
  Receive Date: 20140917
  Receipt Date: 20140917
  Transmission Date: 20150326
  Serious: Yes (Death, Hospitalization)
  Sender: FDA-Public Use
  Company Number: IPC201409-000467

PATIENT
  Age: 50 Year
  Sex: Female

DRUGS (3)
  1. METOPROLOL TARTRATE. [Suspect]
     Active Substance: METOPROLOL TARTRATE
  2. FENOFIBRATE. [Concomitant]
     Active Substance: FENOFIBRATE
  3. BUPROPION [Suspect]
     Active Substance: BUPROPION

REACTIONS (8)
  - Intentional overdose [None]
  - Suicide attempt [None]
  - Convulsion [None]
  - Multi-organ failure [None]
  - Somnolence [None]
  - Cardiac arrest [None]
  - Bradycardia [None]
  - Hypotension [None]
